FAERS Safety Report 11186286 (Version 1)
Quarter: 2015Q2

REPORT INFORMATION
  Report Type: Report from Study
  Country: JP (occurrence: JP)
  Receive Date: 20150612
  Receipt Date: 20150612
  Transmission Date: 20150821
  Serious: Yes (Hospitalization)
  Sender: FDA-Public Use
  Company Number: JP-009507513-1506JPN006880

PATIENT
  Age: 64 Year
  Sex: Male
  Weight: 66 kg

DRUGS (12)
  1. PARIET [Concomitant]
     Active Substance: RABEPRAZOLE SODIUM
     Indication: GASTRIC ULCER
     Dosage: 10 MG, QD
     Route: 048
     Dates: start: 20120317
  2. REBETOL [Suspect]
     Active Substance: RIBAVIRIN
     Dosage: 400 MG, QD
     Route: 048
     Dates: start: 20120625, end: 20120711
  3. PEGINTRON [Suspect]
     Active Substance: PEGINTERFERON ALFA-2B
     Dosage: 50 MICROGRAM, QW
     Route: 058
     Dates: start: 20130204, end: 20130415
  4. LUPRAC [Concomitant]
     Active Substance: TORSEMIDE
     Indication: ASCITES
     Dosage: 4 MG, QD
     Route: 048
     Dates: start: 20120317, end: 20120829
  5. REBETOL [Suspect]
     Active Substance: RIBAVIRIN
     Indication: HEPATIC CIRRHOSIS
     Dosage: 800 MG, QD
     Route: 048
     Dates: start: 20120606, end: 20120624
  6. REBETOL [Suspect]
     Active Substance: RIBAVIRIN
     Dosage: 200 MG, QD
     Route: 048
     Dates: start: 20120702, end: 20120709
  7. PEGINTRON [Suspect]
     Active Substance: PEGINTERFERON ALFA-2B
     Dosage: 50 MICROGRAM, QW
     Route: 058
     Dates: start: 20130624, end: 20140811
  8. REBETOL [Suspect]
     Active Substance: RIBAVIRIN
     Dosage: 200 MG, QD
     Route: 048
     Dates: start: 20130204, end: 20130415
  9. REBETOL [Suspect]
     Active Substance: RIBAVIRIN
     Dosage: 200 MG, QD
     Route: 048
     Dates: start: 20130624, end: 20140811
  10. ALLEGRA [Concomitant]
     Active Substance: FEXOFENADINE HYDROCHLORIDE
     Indication: RHINITIS ALLERGIC
     Dosage: 120 MG, BID
     Route: 048
     Dates: start: 20120317, end: 20140602
  11. LASIX [Concomitant]
     Active Substance: FUROSEMIDE
     Indication: ASCITES
     Dosage: 20 MG, QD
     Route: 048
     Dates: start: 20120419, end: 20120829
  12. PEGINTRON [Suspect]
     Active Substance: PEGINTERFERON ALFA-2B
     Indication: HEPATIC CIRRHOSIS
     Dosage: 100 MICROGRAM, QW
     Route: 058
     Dates: start: 20120606, end: 20120802

REACTIONS (19)
  - Dry eye [Unknown]
  - Eczema [Recovering/Resolving]
  - Xeroderma [Recovering/Resolving]
  - Neuropathy peripheral [Recovering/Resolving]
  - Stomatitis [Recovering/Resolving]
  - Pain [Recovering/Resolving]
  - Pyrexia [Recovering/Resolving]
  - Endophthalmitis [Recovering/Resolving]
  - Ocular hypertension [Unknown]
  - Sinusitis [Recovering/Resolving]
  - Hyperuricaemia [Recovering/Resolving]
  - Pain [Recovering/Resolving]
  - Nephrogenic anaemia [Unknown]
  - Hypoalbuminaemia [Recovering/Resolving]
  - Insomnia [Recovering/Resolving]
  - Pyrexia [Recovering/Resolving]
  - Pruritus [Recovering/Resolving]
  - Pharyngitis [Recovering/Resolving]
  - Pharyngitis [Recovered/Resolved]

NARRATIVE: CASE EVENT DATE: 20120606
